FAERS Safety Report 14141699 (Version 3)
Quarter: 2018Q1

REPORT INFORMATION
  Report Type: Report from Study
  Country: CA (occurrence: CA)
  Receive Date: 20171030
  Receipt Date: 20180305
  Transmission Date: 20180508
  Serious: Yes (Other)
  Sender: FDA-Public Use
  Company Number: CA-GLAXOSMITHKLINE-CA2017GSK165807

PATIENT
  Sex: Female

DRUGS (2)
  1. SALBUTAMOL SULPHATE [Suspect]
     Active Substance: ALBUTEROL SULFATE
     Indication: PRODUCT USED FOR UNKNOWN INDICATION
     Dosage: UNK
  2. FLONASE ALLERGY RELIEF [Suspect]
     Active Substance: FLUTICASONE PROPIONATE
     Indication: PRODUCT USED FOR UNKNOWN INDICATION
     Dosage: UNK

REACTIONS (6)
  - Laryngeal dysplasia [Unknown]
  - Hypertension [Unknown]
  - Respiratory disorder [Recovering/Resolving]
  - Migraine [Unknown]
  - Arthropathy [Not Recovered/Not Resolved]
  - Vagus nerve disorder [Unknown]

NARRATIVE: CASE EVENT DATE: 2012
